FAERS Safety Report 20351255 (Version 1)
Quarter: 2022Q1

REPORT INFORMATION
  Report Type: Spontaneous
  Country: US (occurrence: None)
  Receive Date: 20220118
  Receipt Date: 20220118
  Transmission Date: 20220424
  Serious: Yes (unspecified)
  Sender: FDA-Public Use
  Company Number: None

PATIENT
  Age: 31 Year
  Sex: Female
  Weight: 162.8 kg

DRUGS (1)
  1. BAMLANIVIMAB\ETESEVIMAB [Suspect]
     Active Substance: BAMLANIVIMAB\ETESEVIMAB
     Indication: COVID-19
     Dosage: FREQUENCY : ONCE;?
     Route: 042
     Dates: start: 20211223, end: 20211223

REACTIONS (6)
  - Infusion related reaction [None]
  - Chest discomfort [None]
  - Pain [None]
  - Feeling hot [None]
  - Restlessness [None]
  - Flushing [None]

NARRATIVE: CASE EVENT DATE: 20211223
